FAERS Safety Report 8160329-0 (Version None)
Quarter: 2012Q1

REPORT INFORMATION
  Report Type: 
  Country: None (occurrence: None)
  Receive Date: 20120223
  Receipt Date: 20120216
  Transmission Date: 20120608
  Serious: Yes (Hospitalization)
  Sender: FDA-Public Use
  Company Number: JP-ABBOTT-12P-087-0895972-00

PATIENT
  Age: 84 Year
  Sex: Female

DRUGS (10)
  1. LIPACREON [Suspect]
     Indication: PANCREATITIS CHRONIC
  2. TELMISARTAN/AMLODIPINE BESILATE [Concomitant]
     Indication: PRODUCT USED FOR UNKNOWN INDICATION
     Route: 048
  3. LIPACREON [Suspect]
     Indication: PANCREATIC DISORDER
     Route: 048
     Dates: start: 20111205, end: 20120113
  4. ISOPRENALINE HYDROCHLORIDE [Concomitant]
     Indication: PRODUCT USED FOR UNKNOWN INDICATION
     Route: 048
  5. KETOPROFEN [Concomitant]
     Indication: BACK PAIN
     Route: 062
  6. CILOSTAZOL [Concomitant]
     Indication: PRODUCT USED FOR UNKNOWN INDICATION
     Route: 048
  7. FEBUXOSTAT [Concomitant]
     Indication: PRODUCT USED FOR UNKNOWN INDICATION
     Dates: end: 20120112
  8. CAMOSTAT MESILATE [Concomitant]
     Indication: PANCREATITIS CHRONIC
     Route: 048
     Dates: end: 20120112
  9. LANSOPRAZOLE [Concomitant]
     Indication: PRODUCT USED FOR UNKNOWN INDICATION
     Route: 048
  10. SODIUM FERROUS CITRATE [Concomitant]
     Indication: NEPHROGENIC ANAEMIA
     Route: 048
     Dates: end: 20120112

REACTIONS (3)
  - DIARRHOEA [None]
  - CONSTIPATION [None]
  - AMYLASE INCREASED [None]
